FAERS Safety Report 12945121 (Version 5)
Quarter: 2017Q1

REPORT INFORMATION
  Report Type: Spontaneous
  Country: US (occurrence: US)
  Receive Date: 20161115
  Receipt Date: 20170329
  Transmission Date: 20170428
  Serious: Yes (Other)
  Sender: FDA-Public Use
  Company Number: US-ALLERGAN-1675816US

PATIENT
  Age: 45 Year
  Sex: Female
  Weight: 93.79 kg

DRUGS (2)
  1. ZOLOFT [Concomitant]
     Active Substance: SERTRALINE HYDROCHLORIDE
     Indication: PRODUCT USED FOR UNKNOWN INDICATION
     Dosage: 100 MG, UNK
     Route: 048
  2. KYBELLA [Suspect]
     Active Substance: DEOXYCHOLIC ACID
     Indication: FAT TISSUE INCREASED
     Dosage: 4 UNK, SINGLE
     Route: 058
     Dates: start: 20161103, end: 20161103

REACTIONS (12)
  - Injection site necrosis [Not Recovered/Not Resolved]
  - Urinary incontinence [Recovered/Resolved]
  - Injection site pain [Unknown]
  - Vomiting [Recovered/Resolved]
  - Injection site bruising [Unknown]
  - Hyperaemia [Not Recovered/Not Resolved]
  - Headache [Recovered/Resolved]
  - Injection site swelling [Recovering/Resolving]
  - Hyperhidrosis [Recovered/Resolved]
  - Nausea [Recovered/Resolved]
  - Pain [Not Recovered/Not Resolved]
  - Loss of consciousness [Recovered/Resolved]

NARRATIVE: CASE EVENT DATE: 20161103
